FAERS Safety Report 6106357-8 (Version None)
Quarter: 2009Q1

REPORT INFORMATION
  Report Type: 
  Country: None (occurrence: None)
  Receive Date: 20090306
  Receipt Date: 20080417
  Transmission Date: 20090719
  Serious: No
  Sender: FDA-Public Use
  Company Number: US-B.I. PHARMACEUTICALS,INC./RIDGEFIELD-2008-BP-06162BP

PATIENT
  Sex: Male

DRUGS (1)
  1. FLOMAX [Suspect]
     Dates: start: 20030101

REACTIONS (1)
  - DRUG EFFECT DECREASED [None]
